FAERS Safety Report 24198953 (Version 1)
Quarter: 2024Q3

REPORT INFORMATION
  Report Type: Report from Study
  Country: US (occurrence: US)
  Receive Date: 20240812
  Receipt Date: 20240812
  Transmission Date: 20241016
  Serious: Yes (Death, Hospitalization, Other)
  Sender: ABBVIE
  Company Number: US-ABBVIE-5875587

PATIENT
  Sex: Female

DRUGS (1)
  1. CREON [Suspect]
     Active Substance: PANCRELIPASE AMYLASE\PANCRELIPASE LIPASE\PANCRELIPASE PROTEASE
     Indication: Pancreatic failure
     Dosage: 36,000 UNITS. 3 PILLS, 3X DAILY W MEALS.
     Route: 048
     Dates: start: 2023

REACTIONS (1)
  - Pancreatic disorder [Fatal]
